FAERS Safety Report 6703852-5 (Version None)
Quarter: 2010Q2

REPORT INFORMATION
  Report Type: 
  Country: None (occurrence: None)
  Receive Date: 20100430
  Receipt Date: 20100420
  Transmission Date: 20101027
  Serious: Yes (Hospitalization)
  Sender: FDA-Public Use
  Company Number: US-PFIZER INC-2010049920

PATIENT
  Age: 51 Year
  Sex: Female
  Weight: 82.2 kg

DRUGS (2)
  1. SUNITINIB MALATE [Suspect]
     Indication: CERVIX CARCINOMA
     Dosage: UNK
     Route: 048
     Dates: start: 20100224, end: 20100322
  2. WARFARIN SODIUM [Suspect]
     Indication: DEEP VEIN THROMBOSIS
     Dosage: UNK
     Route: 048

REACTIONS (4)
  - DEEP VEIN THROMBOSIS [None]
  - LOWER GASTROINTESTINAL HAEMORRHAGE [None]
  - LUNG INFECTION [None]
  - URINARY TRACT OBSTRUCTION [None]
